FAERS Safety Report 8889215 (Version 1)
Quarter: 2012Q4

REPORT INFORMATION
  Report Type: 
  Country: AU (occurrence: AU)
  Receive Date: 20121106
  Receipt Date: 20121106
  Transmission Date: 20130627
  Serious: Yes (Death, Other)
  Sender: FDA-Public Use
  Company Number: AU-ROCHE-1120704

PATIENT
  Age: 62 Year
  Sex: Female
  Weight: 60 kg

DRUGS (5)
  1. ZELBORAF [Suspect]
     Indication: MALIGNANT MELANOMA
     Route: 048
     Dates: start: 20120615, end: 20121001
  2. CLONAZEPAM [Concomitant]
     Indication: ANXIETY
     Route: 048
  3. CYCLIZINE [Concomitant]
     Indication: NAUSEA
     Route: 048
     Dates: end: 20120828
  4. METHADONE [Concomitant]
     Indication: PAIN
     Route: 048
     Dates: end: 20120828
  5. MIRTAZAPINE [Concomitant]
     Indication: DEPRESSION
     Route: 048

REACTIONS (5)
  - Disease progression [Fatal]
  - Arthralgia [Unknown]
  - Melaena [Unknown]
  - Anaemia [Unknown]
  - Fatigue [Not Recovered/Not Resolved]
